FAERS Safety Report 5519535-3 (Version None)
Quarter: 2007Q4

REPORT INFORMATION
  Report Type: 
  Country: None (occurrence: None)
  Receive Date: 20071116
  Receipt Date: 20071112
  Transmission Date: 20080405
  Serious: Yes (Hospitalization)
  Sender: FDA-Public Use
  Company Number: B0484277A

PATIENT
  Age: 85 Year
  Sex: Male
  Weight: 54 kg

DRUGS (12)
  1. SERETIDE [Suspect]
     Indication: ASTHMA
     Dosage: 250MCG TWICE PER DAY
     Route: 055
     Dates: start: 20070802, end: 20070818
  2. CHINESE MEDICINE [Suspect]
     Dosage: 7.5MCG THREE TIMES PER DAY
     Route: 048
     Dates: start: 20070806, end: 20070808
  3. CONCURRENT MEDICATIONS [Suspect]
     Indication: DRUG USE FOR UNKNOWN INDICATION
     Route: 065
  4. PERSANTINE [Concomitant]
     Indication: HYPERTENSION
     Dosage: 75MG PER DAY
     Route: 048
  5. ZANTAC [Concomitant]
     Indication: GASTRIC ULCER
     Dosage: 300MG PER DAY
     Route: 048
     Dates: start: 19960418, end: 20070827
  6. ONON [Concomitant]
     Indication: ASTHMA
     Dosage: 450MG PER DAY
     Route: 048
     Dates: start: 19980503, end: 20070827
  7. SUNRYTHM [Concomitant]
     Indication: ARRHYTHMIA
     Dosage: 150MG PER DAY
     Route: 048
     Dates: start: 19940106
  8. SELBEX [Concomitant]
     Indication: GASTRITIS
     Dosage: 1G PER DAY
     Route: 048
     Dates: start: 19960418
  9. HARNAL [Concomitant]
     Indication: BENIGN PROSTATIC HYPERPLASIA
     Dosage: .2MG PER DAY
     Route: 048
  10. ADALAT [Concomitant]
     Indication: HYPERTENSION
     Dosage: 40MG PER DAY
     Route: 048
     Dates: start: 19930430
  11. THEO-DUR [Concomitant]
     Indication: ASTHMA
     Dosage: 200MG PER DAY
     Route: 048
     Dates: start: 19980513, end: 20070827
  12. HOKUNALIN [Concomitant]
     Dosage: 2MG PER DAY
     Route: 062

REACTIONS (3)
  - DRUG ERUPTION [None]
  - ERYTHEMA [None]
  - RASH [None]
